FAERS Safety Report 25436434 (Version 1)
Quarter: 2025Q2

REPORT INFORMATION
  Report Type: Spontaneous
  Country: BR (occurrence: BR)
  Receive Date: 20250614
  Receipt Date: 20250614
  Transmission Date: 20250717
  Serious: Yes (Hospitalization, Other)
  Sender: ALEXION PHARMACEUTICALS
  Company Number: BR-AstraZeneca-CH-00889295A

PATIENT
  Age: 59 Year

DRUGS (2)
  1. BRILINTA [Suspect]
     Active Substance: TICAGRELOR
     Dosage: 90 MILLIGRAM, 1 TABLET EVERY 12 HOURS, TOTALING 2 TABLETS DAILY
     Route: 065
  2. METOPROLOL SUCCINATE [Suspect]
     Active Substance: METOPROLOL SUCCINATE
     Route: 065

REACTIONS (7)
  - Transient ischaemic attack [Unknown]
  - Aneurysm [Unknown]
  - Angioplasty [Unknown]
  - Carotid artery thrombosis [Unknown]
  - Carotid artery aneurysm [Unknown]
  - Subclavian artery aneurysm [Unknown]
  - Burn oesophageal [Unknown]
